FAERS Safety Report 8210648-4 (Version None)
Quarter: 2012Q1

REPORT INFORMATION
  Report Type: 
  Country: None (occurrence: None)
  Receive Date: 20120314
  Receipt Date: 20120306
  Transmission Date: 20120608
  Serious: Yes (Death, Hospitalization)
  Sender: FDA-Public Use
  Company Number: DE-ASTRAZENECA-2012SE16920

PATIENT
  Age: 55 Year
  Sex: Male

DRUGS (7)
  1. MELPHALAN HYDROCHLORIDE [Concomitant]
  2. THIOTEPA [Concomitant]
  3. IMMUNOGLOBULIN A/IMMUNOGLOBULINS [Concomitant]
     Route: 042
  4. ATGAM [Concomitant]
  5. FOSCARNET [Suspect]
     Indication: ENCEPHALITIS CYTOMEGALOVIRUS
     Route: 042
  6. IMMUNE GLOBULIN INTRAVENOUS (HUMAN) [Concomitant]
     Route: 042
  7. FLUDARABINE PHOSPHATE [Concomitant]

REACTIONS (9)
  - ENCEPHALITIS CYTOMEGALOVIRUS [None]
  - HYPOREFLEXIA [None]
  - SENSORY LOSS [None]
  - URINARY RETENTION [None]
  - MONOPARESIS [None]
  - PARAESTHESIA [None]
  - MUSCULAR WEAKNESS [None]
  - CONFUSIONAL STATE [None]
  - RADICULOPATHY [None]
